FAERS Safety Report 7964856-8 (Version None)
Quarter: 2011Q4

REPORT INFORMATION
  Report Type: 
  Country: None (occurrence: None)
  Receive Date: 20111205
  Receipt Date: 20111111
  Transmission Date: 20120403
  Serious: Yes (Other)
  Sender: FDA-Public Use
  Company Number: 2011MA017069

PATIENT
  Sex: Male

DRUGS (3)
  1. QUININE SULFATE [Suspect]
     Indication: MUSCLE SPASMS
  2. ASPIRIN [Suspect]
  3. IBUPROFEN [Suspect]
     Dosage: QD

REACTIONS (6)
  - ANAEMIA [None]
  - UNEVALUABLE EVENT [None]
  - UPPER GASTROINTESTINAL HAEMORRHAGE [None]
  - CHILLS [None]
  - DIZZINESS [None]
  - NIGHT SWEATS [None]
